FAERS Safety Report 4591873-0 (Version None)
Quarter: 2005Q1

REPORT INFORMATION
  Report Type: 
  Country: None (occurrence: None)
  Receive Date: 20050222
  Receipt Date: 20050202
  Transmission Date: 20050727
  Serious: Yes (Other)
  Sender: FDA-Public Use
  Company Number: CEL-2005-00169-ROC

PATIENT
  Age: 14 Year
  Sex: Male
  Weight: 27 kg

DRUGS (3)
  1. METADATE CD [Suspect]
     Dosage: 20MG EVERY MORNING AND EVERY AFTERNOON, PER ORAL
     Route: 048
     Dates: start: 20020101
  2. SAIZEN [Suspect]
     Indication: GROWTH RETARDATION
     Dates: start: 20031213, end: 20040312
  3. LEXAPRO [Concomitant]

REACTIONS (8)
  - ABNORMAL BEHAVIOUR [None]
  - AGGRESSION [None]
  - ANXIETY [None]
  - DEPRESSION [None]
  - DRUG INTERACTION [None]
  - GROWTH RETARDATION [None]
  - MEDICATION ERROR [None]
  - SUICIDAL IDEATION [None]
